FAERS Safety Report 16928594 (Version 1)
Quarter: 2019Q4

REPORT INFORMATION
  Report Type: Spontaneous
  Country: GB (occurrence: GB)
  Receive Date: 20191017
  Receipt Date: 20191017
  Transmission Date: 20200122
  Serious: Yes (Hospitalization, Disabling, Other)
  Sender: FDA-Public Use
  Company Number: GB-ACCORD-157714

PATIENT
  Age: 38 Year
  Sex: Female
  Weight: 84.6 kg

DRUGS (1)
  1. ACCORD HEALTHCARE TOPIRAMATE [Suspect]
     Active Substance: TOPIRAMATE
     Indication: MIGRAINE WITH AURA
     Dosage: 25G DAILY INCREMENTAL INCREASE TO 125G DAILY INCREMENTAL DECREASE
     Route: 048
     Dates: start: 20190703, end: 20190904

REACTIONS (15)
  - Paraesthesia [Recovered/Resolved]
  - Cough [Recovered/Resolved]
  - Seizure [Recovered/Resolved]
  - Tremor [Recovered/Resolved]
  - Retching [Recovered/Resolved]
  - Tinnitus [Recovered/Resolved]
  - Dry mouth [Recovered/Resolved]
  - Heart rate increased [Recovered/Resolved]
  - Constipation [Not Recovered/Not Resolved]
  - Fungal infection [Not Recovered/Not Resolved]
  - Photophobia [Recovered/Resolved with Sequelae]
  - Visual impairment [Recovered/Resolved]
  - Insomnia [Recovered/Resolved]
  - Dysarthria [Recovered/Resolved]
  - Thirst [Recovered/Resolved]

NARRATIVE: CASE EVENT DATE: 20190724
